FAERS Safety Report 6512462-4 (Version None)
Quarter: 2009Q4

REPORT INFORMATION
  Report Type: 
  Country: None (occurrence: None)
  Receive Date: 20091222
  Receipt Date: 20091211
  Transmission Date: 20100525
  Serious: Yes (Hospitalization)
  Sender: FDA-Public Use
  Company Number: GB-WATSON-2009-10827

PATIENT

DRUGS (3)
  1. SULFAMETHOXAZOLE/TRIMETHOPRIM 400/80 (WATSON LABORATORIES) [Suspect]
     Indication: ANTIFUNGAL PROPHYLAXIS
     Dosage: 960 MG, TID
     Route: 065
     Dates: start: 20071031
  2. FLUCONAZOLE [Suspect]
     Indication: ORAL CANDIDIASIS
     Dosage: 50 MG, DAILY
     Route: 058
     Dates: start: 20071105, end: 20071113
  3. SIMVASTATIN [Suspect]
     Indication: MYOCARDIAL ISCHAEMIA
     Dosage: 40 MG, DAILY
     Route: 048
     Dates: start: 20070301, end: 20071113

REACTIONS (4)
  - DRUG INTERACTION [None]
  - RENAL FAILURE ACUTE [None]
  - RHABDOMYOLYSIS [None]
  - TUBERCULOSIS [None]
